FAERS Safety Report 9000950 (Version 1)
Quarter: 2013Q1

REPORT INFORMATION
  Report Type: Spontaneous
  Country: US (occurrence: None)
  Receive Date: 20130103
  Receipt Date: 20130103
  Transmission Date: 20140127
  Serious: Yes (Hospitalization)
  Sender: FDA-Public Use
  Company Number: None

PATIENT
  Age: 37 Year
  Sex: Female
  Weight: 46.27 kg

DRUGS (1)
  1. LEVOFLOXACIN [Suspect]
     Indication: COUGH
     Dosage: 1 TABLET
     Route: 048
     Dates: start: 20121231, end: 20121231

REACTIONS (7)
  - Malaise [None]
  - Urticaria [None]
  - Swollen tongue [None]
  - Pharyngeal oedema [None]
  - Diarrhoea [None]
  - Ear discomfort [None]
  - Nausea [None]
